FAERS Safety Report 10258113 (Version 3)
Quarter: 2014Q3

REPORT INFORMATION
  Report Type: Spontaneous
  Country: IT (occurrence: IT)
  Receive Date: 20140625
  Receipt Date: 20140912
  Transmission Date: 20150326
  Serious: Yes (Life-Threatening)
  Sender: FDA-Public Use
  Company Number: PHHY2014IT073029

PATIENT
  Age: 66 Year
  Sex: Female

DRUGS (9)
  1. SUPRANE [Suspect]
     Active Substance: DESFLURANE
  2. MIDAZOLAM IBI [Suspect]
     Active Substance: MIDAZOLAM\MIDAZOLAM HYDROCHLORIDE
     Indication: GENERAL ANAESTHESIA
     Dosage: 2 MG, ONCE/SINGLE
     Route: 042
  3. DIPRIVAN [Suspect]
     Active Substance: PROPOFOL
     Dosage: 200 MG, ONCE/SINGLE
     Route: 042
     Dates: start: 20140530
  4. ROCURONIUM BROMIDE. [Suspect]
     Active Substance: ROCURONIUM BROMIDE
     Indication: GENERAL ANAESTHESIA
     Dosage: 30 MG, ONCE/SINGLE
     Route: 042
     Dates: start: 20140530
  5. FENTANEST [Suspect]
     Active Substance: FENTANYL CITRATE
     Indication: GENERAL ANAESTHESIA
     Dosage: 200 UG, ONCE/SINGLE
     Route: 042
     Dates: start: 20140530
  6. UNASYN [Suspect]
     Active Substance: AMPICILLIN SODIUM\SULBACTAM SODIUM
     Dosage: 3 G, ONCE/SINGLE
     Route: 042
  7. DISUFEN [Suspect]
     Active Substance: SUFENTANIL CITRATE
     Indication: EPIDURAL ANALGESIA
     Dates: start: 20140530
  8. ROPIVACAINA KABI [Suspect]
     Active Substance: ROPIVACAINE
     Indication: EPIDURAL ANALGESIA
  9. RANITIDINA ANGENERICO [Suspect]
     Active Substance: RANITIDINE HYDROCHLORIDE
     Dosage: 50 MG, ONCE/SINGLE
     Route: 042

REACTIONS (1)
  - Angioedema [Recovered/Resolved]

NARRATIVE: CASE EVENT DATE: 20140530
